FAERS Safety Report 9733148 (Version 1)
Quarter: 2013Q4

REPORT INFORMATION
  Report Type: Spontaneous
  Country: US (occurrence: US)
  Receive Date: 20131205
  Receipt Date: 20131205
  Transmission Date: 20140711
  Serious: Yes (Other)
  Sender: FDA-Public Use
  Company Number: US-JNJFOC-20131116036

PATIENT
  Age: 71 Year
  Sex: Female

DRUGS (6)
  1. HALOPERIDOL [Suspect]
     Indication: AGITATION
     Route: 065
  2. HALOPERIDOL [Suspect]
     Indication: CONFUSIONAL STATE
     Route: 065
  3. LORAZEPAM [Suspect]
     Indication: AGITATION
     Route: 065
  4. LORAZEPAM [Suspect]
     Indication: CONFUSIONAL STATE
     Route: 065
  5. BACLOFEN [Suspect]
     Indication: PRODUCT USED FOR UNKNOWN INDICATION
     Route: 048
  6. BACLOFEN [Suspect]
     Indication: PRODUCT USED FOR UNKNOWN INDICATION
     Route: 048

REACTIONS (11)
  - Hypotension [Unknown]
  - Troponin increased [Unknown]
  - Agitation [Unknown]
  - Hyperthermia [Unknown]
  - Confusional state [Unknown]
  - Muscle rigidity [Unknown]
  - Tremor [Unknown]
  - Clonus [Unknown]
  - Neuroleptic malignant syndrome [Unknown]
  - Ventricular hypokinesia [Unknown]
  - Ejection fraction decreased [Unknown]
